FAERS Safety Report 13878814 (Version 3)
Quarter: 2017Q3

REPORT INFORMATION
  Report Type: Spontaneous
  Country: IT (occurrence: IT)
  Receive Date: 20170817
  Receipt Date: 20170921
  Transmission Date: 20171127
  Serious: Yes (Hospitalization)
  Sender: FDA-Public Use
  Company Number: IT-PFIZER INC-2017357934

PATIENT
  Age: 54 Year
  Sex: Male

DRUGS (5)
  1. NICOZID [Suspect]
     Active Substance: ISONIAZID
     Indication: PULMONARY TUBERCULOSIS
     Dosage: 300 MG, DAILY
     Route: 048
     Dates: start: 20170807, end: 20170808
  2. BE TOTAL /01327201/ [Concomitant]
     Dosage: 1 DF, DAILY
     Route: 048
  3. PANTOPRAZOLE SODIUM. [Concomitant]
     Active Substance: PANTOPRAZOLE SODIUM
     Dosage: 20 MG, DAILY
     Route: 048
  4. RIFADIN [Concomitant]
     Active Substance: RIFAMPIN
     Indication: PULMONARY TUBERCULOSIS
     Dosage: 600 MG, DAILY
     Route: 042
     Dates: start: 20170804, end: 20170809
  5. SOLU-MEDROL [Concomitant]
     Active Substance: METHYLPREDNISOLONE SODIUM SUCCINATE
     Dosage: 100 MG, DAILY
     Route: 042
     Dates: start: 20170808, end: 20170808

REACTIONS (3)
  - Dermatitis allergic [Recovered/Resolved]
  - Urticaria [Recovered/Resolved]
  - Pruritus [Recovered/Resolved]

NARRATIVE: CASE EVENT DATE: 20170808
